FAERS Safety Report 23208827 (Version 1)
Quarter: 2023Q4

REPORT INFORMATION
  Report Type: Spontaneous
  Country: US (occurrence: US)
  Receive Date: 20231121
  Receipt Date: 20231121
  Transmission Date: 20240109
  Serious: No
  Sender: FDA-Public Use
  Company Number: US-BIOGEN-2023BI01236856

PATIENT
  Sex: Male

DRUGS (10)
  1. TYSABRI [Suspect]
     Active Substance: NATALIZUMAB
     Indication: Multiple sclerosis
     Dosage: INFUSED OVER 1 HOUR
     Route: 050
     Dates: start: 20211013
  2. TYSABRI [Suspect]
     Active Substance: NATALIZUMAB
     Dosage: INFUSED OVER 1 HOUR
     Route: 050
     Dates: start: 2022
  3. VITAMIN D3 [Concomitant]
     Active Substance: CHOLECALCIFEROL
     Dosage: WITH BREAKFAST
     Route: 050
  4. VITAMIN B COMPLEX [Concomitant]
     Active Substance: CYANOCOBALAMIN\DEXPANTHENOL\NIACINAMIDE\PYRIDOXINE HYDROCHLORIDE\RIBOFLAVIN 5^-PHOSPHATE SODIUM\THIA
     Route: 050
  5. DIAZEPAM [Concomitant]
     Active Substance: DIAZEPAM
     Dosage: AS NEEDED?MAXIMUM DAILY AMOUNT 20 MG
     Route: 050
  6. KETOCONAZOLE [Concomitant]
     Active Substance: KETOCONAZOLE
     Dosage: 2 PERCENT CREAM APPLY TO EFFECTED AREAS ONCE DAILY FOR 2-3 WEEKS
     Route: 050
  7. KETOCONAZOLE [Concomitant]
     Active Substance: KETOCONAZOLE
     Dosage: 2 PERCENT SHAMPOO 2-3 TIMES PER WEEK FOR 2-3 WEEKS?LEFT SIT FOR 5 MINUTES
     Route: 050
  8. MODAFINIL [Concomitant]
     Active Substance: MODAFINIL
     Dosage: EVERY MORNING
     Route: 050
  9. MUPIROCIN [Concomitant]
     Active Substance: MUPIROCIN
     Dosage: 2 PERCENT
     Route: 050
  10. MOMETASONE [Concomitant]
     Active Substance: MOMETASONE
     Route: 050

REACTIONS (2)
  - Prescribed underdose [Not Recovered/Not Resolved]
  - Multiple sclerosis [Unknown]

NARRATIVE: CASE EVENT DATE: 20220101
